FAERS Safety Report 9263042 (Version 2)
Quarter: 2013Q4

REPORT INFORMATION
  Report Type: Spontaneous
  Country: GB (occurrence: None)
  Receive Date: 20130425
  Receipt Date: 20131115
  Transmission Date: 20140711
  Serious: Yes (Disabling)
  Sender: FDA-Public Use
  Company Number: GB-DEXPHARM-20130162

PATIENT
  Age: 64 Year
  Sex: Male

DRUGS (5)
  1. DICLOFENAC [Suspect]
     Dates: start: 20121220
  2. FINASTERIDE [Suspect]
     Dates: start: 20130130
  3. DUTASTERIDE [Concomitant]
  4. OMEPRAZOLE [Concomitant]
  5. PROCHLORPERAZINE [Concomitant]

REACTIONS (2)
  - Back pain [None]
  - Drug interaction [None]
